FAERS Safety Report 6899764-7 (Version None)
Quarter: 2010Q3

REPORT INFORMATION
  Report Type: 
  Country: None (occurrence: None)
  Receive Date: 20100708
  Receipt Date: 20090723
  Transmission Date: 20110219
  Serious: Yes (Other)
  Sender: FDA-Public Use
  Company Number: 2009245969

PATIENT
  Sex: Female

DRUGS (3)
  1. CHANTIX [Suspect]
  2. VALIUM [Suspect]
  3. WINE (ETHANOL) [Concomitant]

REACTIONS (3)
  - INJURY [None]
  - MEMORY IMPAIRMENT [None]
  - ROAD TRAFFIC ACCIDENT [None]
